FAERS Safety Report 6347385-7 (Version None)
Quarter: 2009Q3

REPORT INFORMATION
  Report Type: 
  Country: None (occurrence: None)
  Receive Date: 20090908
  Receipt Date: 20090908
  Transmission Date: 20100115
  Serious: Yes (Hospitalization)
  Sender: FDA-Public Use
  Company Number: None

PATIENT
  Sex: Female
  Weight: 80.74 kg

DRUGS (20)
  1. HERCEPTIN [Suspect]
     Dosage: 485 MG
     Dates: end: 20090820
  2. ANASTRAZOLE [Concomitant]
  3. ATENOLOL [Concomitant]
  4. AZITHROMYCIN [Concomitant]
  5. ASPIRIN [Concomitant]
  6. CEFTRIAZONE [Concomitant]
  7. CHOLECALCIFEROL [Concomitant]
  8. CODEINE-GUAIFENESIN [Concomitant]
  9. ESOMEPRAZOLE [Concomitant]
  10. FLUOXETINE [Concomitant]
  11. HEPARIN [Concomitant]
  12. MORPHINE [Concomitant]
  13. SODIUM CHLORIDE [Concomitant]
  14. NITROGLYCERIN [Concomitant]
  15. POTASSIUM CHLORIDE [Concomitant]
  16. TEMAZEPAN [Concomitant]
  17. VALSARTAN [Concomitant]
  18. ACETAMINOPHEN [Concomitant]
  19. INSULIN ASPART HUMAN [Concomitant]
  20. ONDANSETRON [Concomitant]

REACTIONS (2)
  - CHEST PAIN [None]
  - CHOLECYSTITIS [None]
